FAERS Safety Report 18208820 (Version 3)
Quarter: 2020Q3

REPORT INFORMATION
  Report Type: Report from Study
  Country: CA (occurrence: CA)
  Receive Date: 20200828
  Receipt Date: 20200915
  Transmission Date: 20201103
  Serious: Yes (Hospitalization, Other)
  Sender: FDA-Public Use
  Company Number: CA-JNJFOC-20200111803

PATIENT
  Age: 16 Year
  Sex: Female
  Weight: 64.8 kg

DRUGS (1)
  1. REMICADE [Suspect]
     Active Substance: INFLIXIMAB
     Indication: COLITIS ULCERATIVE
     Route: 042
     Dates: start: 20191106

REACTIONS (3)
  - Product use issue [Unknown]
  - Dyspepsia [Unknown]
  - Off label use [Unknown]

NARRATIVE: CASE EVENT DATE: 20191106
